FAERS Safety Report 8479155 (Version 6)
Quarter: 2013Q2

REPORT INFORMATION
  Report Type: Spontaneous
  Country: US (occurrence: US)
  Receive Date: 20120327
  Receipt Date: 20130521
  Transmission Date: 20140414
  Serious: Yes (Hospitalization, Disabling, Other)
  Sender: FDA-Public Use
  Company Number: US-009507513-1203USA03297

PATIENT
  Sex: Female
  Weight: 74.84 kg

DRUGS (9)
  1. FOSAMAX [Suspect]
     Dosage: 10 MG, UNK
     Route: 048
     Dates: start: 19990210
  2. FOSAMAX [Suspect]
     Dosage: 35 MG, QW
     Route: 048
     Dates: start: 199908, end: 2008
  3. FOSAMAX [Suspect]
     Dosage: 5 MG, QD
     Route: 048
     Dates: start: 199908, end: 2008
  4. FOSAMAX [Suspect]
     Dosage: 70 MG, UNK
     Route: 048
     Dates: start: 20020808, end: 2008
  5. FOSAMAX [Suspect]
     Dosage: 35 MG, UNK
     Route: 048
     Dates: start: 20080930, end: 20081206
  6. FOSAMAX [Suspect]
     Dosage: 70 MG, UNK
     Route: 048
     Dates: start: 20080402, end: 20080531
  7. CENTRUM (MINERALS (UNSPECIFIED) (+) VITAMINS (UNSPECIFIED)) [Concomitant]
     Dates: start: 1997
  8. CALCIUM (UNSPECIFIED) [Concomitant]
     Dosage: 1000-2000
     Dates: start: 1997
  9. VITAMIN D (UNSPECIFIED) [Concomitant]
     Dosage: 500 MG, UNK
     Dates: start: 1997

REACTIONS (28)
  - Open reduction of fracture [Unknown]
  - Hip fracture [Not Recovered/Not Resolved]
  - Osteoporosis [Not Recovered/Not Resolved]
  - Stress fracture [Not Recovered/Not Resolved]
  - Femur fracture [Not Recovered/Not Resolved]
  - Low turnover osteopathy [Not Recovered/Not Resolved]
  - Hypertension [Unknown]
  - Anaemia postoperative [Unknown]
  - Transfusion [Unknown]
  - Neurogenic bladder [Unknown]
  - Hypokalaemia [Unknown]
  - Hyperglycaemia [Unknown]
  - Leukocytosis [Unknown]
  - Basal cell carcinoma [Unknown]
  - Haematoma evacuation [Recovered/Resolved]
  - Fall [Unknown]
  - Femur fracture [Unknown]
  - Foot fracture [Unknown]
  - Fall [Unknown]
  - Cervical dysplasia [Unknown]
  - Papilloma viral infection [Unknown]
  - Measles [Unknown]
  - Varicella [Unknown]
  - Pneumonia [Unknown]
  - Bursitis [Unknown]
  - Blood calcium decreased [Unknown]
  - Haematoma [Recovered/Resolved]
  - Femur fracture [Not Recovered/Not Resolved]
